FAERS Safety Report 7357120-1 (Version None)
Quarter: 2011Q1

REPORT INFORMATION
  Report Type: 
  Country: None (occurrence: None)
  Receive Date: 20110308
  Receipt Date: 20110204
  Transmission Date: 20110831
  Serious: Yes (Death, Hospitalization)
  Sender: FDA-Public Use
  Company Number: 2011001051

PATIENT
  Age: 63 Year
  Sex: Male
  Weight: 73 kg

DRUGS (4)
  1. ERLOTINIB (ERLOTINIB) (TABLET) (ERLOTINIB) [Suspect]
     Indication: HEPATIC NEOPLASM MALIGNANT
     Dosage: 150 MG, QD, ORAL
     Route: 048
     Dates: start: 20101110, end: 20110112
  2. SORAFENIB (TABLET) [Suspect]
     Indication: HEPATIC NEOPLASM MALIGNANT
     Dosage: 400 MG, BID, ORAL
     Route: 048
     Dates: start: 20101110, end: 20110112
  3. RAMIPRIL [Concomitant]
  4. ACETAMINOPHEN AND TRAMADOL HCL [Concomitant]

REACTIONS (4)
  - RENAL FAILURE [None]
  - GENERAL PHYSICAL HEALTH DETERIORATION [None]
  - MULTI-ORGAN FAILURE [None]
  - DEHYDRATION [None]
